FAERS Safety Report 8329150-4 (Version None)
Quarter: 2012Q2

REPORT INFORMATION
  Report Type: 
  Country: None (occurrence: None)
  Receive Date: 20120502
  Receipt Date: 20101111
  Transmission Date: 20120825
  Serious: No
  Sender: FDA-Public Use
  Company Number: US-TEVA-2010005529

PATIENT
  Sex: Male
  Weight: 74.91 kg

DRUGS (5)
  1. PARNATE [Concomitant]
     Indication: BIPOLAR I DISORDER
     Dates: start: 20030101
  2. LORAZEPAM [Concomitant]
     Indication: ANXIETY
     Dates: start: 20000101
  3. LITHIUM CARBONATE [Concomitant]
     Indication: BIPOLAR I DISORDER
     Dates: start: 20030101
  4. SEROQUEL [Concomitant]
     Indication: BIPOLAR I DISORDER
     Dates: start: 20030101
  5. NUVIGIL [Suspect]
     Indication: BIPOLAR I DISORDER
     Route: 048
     Dates: start: 20100901, end: 20101013

REACTIONS (2)
  - SALIVARY HYPERSECRETION [None]
  - INSOMNIA [None]
